FAERS Safety Report 15289608 (Version 1)
Quarter: 2018Q4

REPORT INFORMATION
  Report Type: Spontaneous
  Country: AU (occurrence: AU)
  Receive Date: 20180817
  Receipt Date: 20180817
  Transmission Date: 20190204
  Serious: Yes (Other)
  Sender: FDA-Public Use
  Company Number: AU-CURIUM PHARMACEUTICALS-200900556

PATIENT
  Age: 58 Year
  Sex: Male

DRUGS (4)
  1. 5-FLUOROURACIL                     /00098801/ [Concomitant]
     Active Substance: FLUOROURACIL
     Indication: CARCINOID TUMOUR
     Dosage: 200 MG/M2 DAILY VIA CONTINUOUS AMBULATORY IV PUMP FOR 4 WEEK PER CYCLE??
     Route: 042
  2. NORMAL SALINE [Concomitant]
     Active Substance: SODIUM CHLORIDE
     Indication: CARCINOID TUMOUR
     Route: 042
  3. LUTETIUM 177 [Concomitant]
     Indication: CARCINOID TUMOUR
     Dosage: UNK
  4. OCTREOSCAN [Suspect]
     Active Substance: INDIUM IN-111 CHLORIDE\INDIUM IN-111 PENTETREOTIDE
     Indication: CARCINOID TUMOUR
     Dosage: 5.3 - 7.8 GBQ VIA INFUSION PUMP OVER 20 MINUTES PER CYCLE
     Route: 042

REACTIONS (6)
  - Product use issue [Recovered/Resolved]
  - Device related thrombosis [Unknown]
  - Lymph node pain [Unknown]
  - Product use in unapproved indication [Recovered/Resolved]
  - Nausea [Unknown]
  - Lymphopenia [Unknown]
